FAERS Safety Report 8143168-6 (Version None)
Quarter: 2012Q1

REPORT INFORMATION
  Report Type: 
  Country: None (occurrence: None)
  Receive Date: 20120217
  Receipt Date: 20120213
  Transmission Date: 20120608
  Serious: No
  Sender: FDA-Public Use
  Company Number: US-PFIZER INC-2012039631

PATIENT
  Sex: Female

DRUGS (7)
  1. METOCLOPRAMIDE [Concomitant]
     Dosage: 10 MG, UNK
  2. RENAGEL [Concomitant]
     Dosage: 400 MG, UNK
  3. QUINAPRIL [Concomitant]
     Dosage: 20 MG, UNK
  4. SUTENT [Suspect]
     Dosage: 25 MG, 1X/DAY
     Route: 048
  5. ISOSORBIDE MONONITRATE [Concomitant]
     Dosage: 20 MG, UNK
  6. FAMOTIDINE [Concomitant]
     Dosage: 20 MG, UNK
  7. ACETYLSALICYLIC ACID [Concomitant]
     Dosage: 81 MG, UNK

REACTIONS (2)
  - NAUSEA [None]
  - DIARRHOEA [None]
